FAERS Safety Report 24016494 (Version 3)
Quarter: 2024Q4

REPORT INFORMATION
  Report Type: Spontaneous
  Country: FR (occurrence: FR)
  Receive Date: 20240626
  Receipt Date: 20241017
  Transmission Date: 20250114
  Serious: Yes (Hospitalization)
  Sender: AMERICAN REGENT
  Company Number: FR-AMERICAN REGENT INC-2024002388

PATIENT
  Age: 72 Year
  Sex: Male
  Weight: 83 kg

DRUGS (14)
  1. FERINJECT [Suspect]
     Active Substance: FERRIC CARBOXYMALTOSE
     Indication: Iron deficiency anaemia
     Dosage: 300 MILLIGRAM (1 IN 1 TOTAL)
     Route: 042
     Dates: start: 20240502, end: 20240502
  2. FERINJECT [Suspect]
     Active Substance: FERRIC CARBOXYMALTOSE
     Dosage: 300 MILLIGRAM (1 IN 1 TOTAL)
     Route: 042
     Dates: start: 20240504, end: 20240504
  3. FERINJECT [Suspect]
     Active Substance: FERRIC CARBOXYMALTOSE
     Dosage: 300 MILLIGRAM (1 IN 1 TOTAL)
     Route: 042
     Dates: start: 20240513, end: 20240513
  4. FERINJECT [Suspect]
     Active Substance: FERRIC CARBOXYMALTOSE
     Dosage: 300 MILLIGRAM (1 IN 1 TOTAL)
     Route: 042
     Dates: start: 20240515, end: 20240515
  5. FERINJECT [Suspect]
     Active Substance: FERRIC CARBOXYMALTOSE
     Dosage: 300 MILLIGRAM (1 IN 1 TOTAL)
     Route: 042
     Dates: start: 20240522, end: 20240522
  6. FERINJECT [Suspect]
     Active Substance: FERRIC CARBOXYMALTOSE
     Dosage: 300 MILLIGRAM (1 IN 1 TOTAL)
     Route: 042
     Dates: start: 20240524, end: 20240524
  7. COLISTIMETHATE SODIUM [Suspect]
     Active Substance: COLISTIMETHATE SODIUM
     Indication: Pseudomonas infection
     Dosage: 4.5 MUI/DAY (1.5 DOSAGE FORMS, 1 IN 1 D)
     Route: 042
     Dates: start: 20240430, end: 20240521
  8. COLISTIMETHATE SODIUM [Suspect]
     Active Substance: COLISTIMETHATE SODIUM
     Dosage: 3 MUI/ DAY (1 DOSAGE FORMS, 1 IN 1 D)
     Route: 042
     Dates: start: 20240522, end: 20240528
  9. LOVENOX [Suspect]
     Active Substance: ENOXAPARIN SODIUM
     Indication: Thrombosis prophylaxis
     Dosage: 4000 IU ANTI-XA/0.4 ML (0.4 ML,1 IN 1 D)
     Route: 058
     Dates: start: 20240329, end: 20240530
  10. DAPTOMYCIN [Suspect]
     Active Substance: DAPTOMYCIN
     Indication: Septic shock
     Dosage: 850 MILLIGRAM, 1 IN 1 D
     Route: 042
     Dates: start: 20240415, end: 20240528
  11. DAPTOMYCIN [Suspect]
     Active Substance: DAPTOMYCIN
     Dosage: EVERY 48 HOURS (850 MILLIGRAM, 1 IN 2 D)
     Route: 042
     Dates: start: 20240528, end: 20240611
  12. LANSOPRAZOLE [Suspect]
     Active Substance: LANSOPRAZOLE
     Indication: Oesophagitis
     Dosage: 15 MG X 2/ DAY (30 MG,1 IN 1 D)
     Route: 048
     Dates: start: 20240327
  13. MEROPENEM [Concomitant]
     Active Substance: MEROPENEM
     Indication: Pseudomonas infection
     Dosage: 1 G X 2/DAY (2 GM, 1 IN 1 D)
     Route: 042
     Dates: start: 20240418, end: 20240528
  14. MEROPENEM [Concomitant]
     Active Substance: MEROPENEM
     Dosage: 1 G X 3/ DAY (3 GM,1 IN 1 D)
     Route: 042
     Dates: start: 20240528, end: 20240718

REACTIONS (1)
  - Drug reaction with eosinophilia and systemic symptoms [Recovered/Resolved]

NARRATIVE: CASE EVENT DATE: 20240520
